FAERS Safety Report 6109470-4 (Version None)
Quarter: 2009Q1

REPORT INFORMATION
  Report Type: 
  Country: None (occurrence: None)
  Receive Date: 20090306
  Receipt Date: 20090306
  Transmission Date: 20090719
  Serious: Yes (Death, Hospitalization)
  Sender: FDA-Public Use
  Company Number: None

PATIENT
  Age: 67 Year
  Sex: Female
  Weight: 84 kg

DRUGS (16)
  1. CETUXIMAB [Suspect]
     Indication: NON-SMALL CELL LUNG CANCER
     Dosage: 250MG/M2 WEEKLY IV
     Route: 042
     Dates: start: 20090129, end: 20090212
  2. TYLENOL [Concomitant]
  3. ASPIRIN [Concomitant]
  4. LIPITOR [Concomitant]
  5. CALCIUM + D [Concomitant]
  6. VITAMIN B-12 [Concomitant]
  7. NEXIUM [Concomitant]
  8. FOLIC ACID [Concomitant]
  9. GLYBURIDE [Concomitant]
  10. HOME O2 [Concomitant]
  11. IMDUR [Concomitant]
  12. TOPROL-XL [Concomitant]
  13. NITROGLYCERIN [Concomitant]
  14. DITROPEN [Concomitant]
  15. DILANTIN [Concomitant]
  16. AVELOX [Concomitant]

REACTIONS (12)
  - ATRIAL FIBRILLATION [None]
  - CARDIAC FAILURE [None]
  - CHEST PAIN [None]
  - DYSPNOEA [None]
  - HEART RATE INCREASED [None]
  - HYPOTENSION [None]
  - PLEURAL EFFUSION [None]
  - PNEUMONIA [None]
  - PULMONARY EMBOLISM [None]
  - RESPIRATORY DISORDER [None]
  - SEPSIS [None]
  - TREATMENT FAILURE [None]
